FAERS Safety Report 4622691-2 (Version None)
Quarter: 2005Q1

REPORT INFORMATION
  Report Type: 
  Country: None (occurrence: None)
  Receive Date: 20050329
  Receipt Date: 20050329
  Transmission Date: 20050727
  Serious: Yes (Hospitalization)
  Sender: FDA-Public Use
  Company Number: None

PATIENT
  Age: 57 Year
  Sex: Male
  Weight: 92.9874 kg

DRUGS (1)
  1. WARFARIN   5 MG [Suspect]
     Indication: ATRIAL FIBRILLATION
     Dosage: 5 MG   DAILY   ORAL
     Route: 048
     Dates: start: 20000601, end: 20050328

REACTIONS (7)
  - CORONARY ARTERY DISEASE [None]
  - DUODENAL ULCER HAEMORRHAGE [None]
  - EJECTION FRACTION DECREASED [None]
  - INTERNATIONAL NORMALISED RATIO INCREASED [None]
  - PAIN [None]
  - PNEUMONIA [None]
  - RENAL FAILURE ACUTE [None]
